FAERS Safety Report 10555864 (Version 4)
Quarter: 2015Q1

REPORT INFORMATION
  Report Type: Report from Study
  Country: KR (occurrence: KR)
  Receive Date: 20141030
  Receipt Date: 20150305
  Transmission Date: 20150720
  Serious: Yes (Hospitalization, Other)
  Sender: FDA-Public Use
  Company Number: KR-GILEAD-2014-0119849

PATIENT
  Age: 71 Year
  Sex: Male
  Weight: 49 kg

DRUGS (14)
  1. HYDROCORTISON                      /00028601/ [Concomitant]
     Active Substance: HYDROCORTISONE
     Indication: PROPHYLAXIS
     Dosage: UNK
     Dates: start: 20140930, end: 20140930
  2. CHLORPHENIRAMIN [Concomitant]
     Indication: PROPHYLAXIS
     Dosage: UNK
     Dates: start: 20140930, end: 20140930
  3. ONDANSETRON [Concomitant]
     Active Substance: ONDANSETRON
     Indication: PROPHYLAXIS OF NAUSEA AND VOMITING
  4. CHLORPHENIRAMINE                   /00072501/ [Concomitant]
     Active Substance: CHLORPHENIRAMINE
     Indication: INFUSION RELATED REACTION
     Dosage: UNK
     Dates: start: 20140930, end: 20140930
  5. HYDROCORTISONE SODIUM SUCCINATE [Concomitant]
     Active Substance: HYDROCORTISONE SODIUM SUCCINATE
     Indication: INFUSION RELATED REACTION
     Dosage: UNK
     Dates: start: 20140930, end: 20140930
  6. RITUXIMAB [Suspect]
     Active Substance: RITUXIMAB
     Indication: NON-HODGKIN^S LYMPHOMA UNSPECIFIED HISTOLOGY INDOLENT
     Dosage: 562.5 MG, CYCLICAL
     Route: 042
     Dates: start: 20140903, end: 20140930
  7. MAGNESIUM OXIDE. [Concomitant]
     Active Substance: MAGNESIUM OXIDE
     Indication: CONSTIPATION PROPHYLAXIS
     Dosage: UNK
     Dates: start: 20140903, end: 20141022
  8. IDELALISIB [Suspect]
     Active Substance: IDELALISIB
     Indication: NON-HODGKIN^S LYMPHOMA UNSPECIFIED HISTOLOGY INDOLENT
     Dosage: 150 MG, BID
     Route: 048
     Dates: start: 20140903, end: 20141022
  9. PRAVASTATIN SODIUM. [Concomitant]
     Active Substance: PRAVASTATIN SODIUM
     Indication: ARTERIOSCLEROSIS
     Dosage: UNK
     Dates: start: 20120905, end: 20141022
  10. OXYCODONE [Concomitant]
     Active Substance: OXYCODONE
     Indication: PROCEDURAL PAIN
     Dosage: UNK
     Dates: start: 20120515, end: 20141022
  11. PREGABALIN. [Concomitant]
     Active Substance: PREGABALIN
     Indication: NEUROPATHY PERIPHERAL
     Dosage: UNK
     Dates: start: 20131005, end: 20141022
  12. BENDAMUSTINE [Suspect]
     Active Substance: BENDAMUSTINE
     Indication: NON-HODGKIN^S LYMPHOMA UNSPECIFIED HISTOLOGY INDOLENT
     Dosage: 135 MG, CYCLICAL
     Route: 042
     Dates: start: 20140903, end: 20141001
  13. ACETAMINOPHEN. [Concomitant]
     Active Substance: ACETAMINOPHEN
     Indication: PROPHYLAXIS
     Dosage: UNK
     Dates: start: 20140930, end: 20140930
  14. PETHIDINE HYDROCHLORIDE [Concomitant]
     Active Substance: MEPERIDINE
     Indication: INFUSION RELATED REACTION
     Dosage: UNK
     Dates: start: 20140930, end: 20140930

REACTIONS (1)
  - Systemic mycosis [Recovered/Resolved]

NARRATIVE: CASE EVENT DATE: 20141022
